FAERS Safety Report 13097262 (Version 1)
Quarter: 2017Q1

REPORT INFORMATION
  Report Type: Spontaneous
  Country: GB (occurrence: GB)
  Receive Date: 20170109
  Receipt Date: 20170109
  Transmission Date: 20170428
  Serious: Yes (Life-Threatening, Hospitalization)
  Sender: FDA-Public Use
  Company Number: GB-PFIZER INC-2017005571

PATIENT
  Age: 18 Year
  Sex: Female
  Weight: 75 kg

DRUGS (6)
  1. CHLORAPREP [Concomitant]
     Active Substance: CHLORHEXIDINE GLUCONATE\ISOPROPYL ALCOHOL
     Indication: SURGERY
     Dosage: UNK
     Route: 061
     Dates: start: 20161215, end: 20161215
  2. SUXAMETHONIUM [Suspect]
     Active Substance: SUCCINYLCHOLINE
     Indication: GENERAL ANAESTHESIA
     Dosage: 100 MG, UNK
     Route: 042
     Dates: start: 20161215
  3. METRONIDAZOLE. [Concomitant]
     Active Substance: METRONIDAZOLE
     Indication: SEPSIS
     Dosage: 500 MG, UNK
     Route: 042
     Dates: start: 20161215, end: 20161215
  4. THIOPENTONE /00053401/ [Suspect]
     Active Substance: THIOPENTAL
     Indication: GENERAL ANAESTHESIA
     Dosage: 450 MG, UNK
     Route: 042
     Dates: start: 20161215
  5. RANITIDINE. [Concomitant]
     Active Substance: RANITIDINE
     Indication: GASTROOESOPHAGEAL REFLUX DISEASE
     Dosage: 150 MG, UNK
     Route: 048
     Dates: start: 20161215, end: 20161215
  6. ROCURONIUM BROMIDE. [Suspect]
     Active Substance: ROCURONIUM BROMIDE
     Indication: GENERAL ANAESTHESIA
     Dosage: 30 MG, UNK
     Route: 042
     Dates: start: 20161215

REACTIONS (6)
  - Hypotension [Recovered/Resolved]
  - Urticaria [Recovered/Resolved]
  - Tachycardia [Recovered/Resolved]
  - Anaphylactic reaction [Recovered/Resolved]
  - Oxygen saturation decreased [Recovered/Resolved]
  - Bronchospasm [Recovered/Resolved]

NARRATIVE: CASE EVENT DATE: 20161215
